FAERS Safety Report 25866109 (Version 1)
Quarter: 2025Q3

REPORT INFORMATION
  Report Type: Spontaneous
  Country: EU (occurrence: EU)
  Receive Date: 20250930
  Receipt Date: 20250930
  Transmission Date: 20251020
  Serious: Yes (Life-Threatening, Hospitalization)
  Sender: SANDOZ
  Company Number: EU-STADA-01451311

PATIENT
  Age: 18 Year
  Sex: Female

DRUGS (15)
  1. AZACITIDINE [Suspect]
     Active Substance: AZACITIDINE
     Indication: Acute undifferentiated leukaemia
     Route: 065
  2. ALKERAN [Suspect]
     Active Substance: MELPHALAN
     Indication: Bone marrow conditioning regimen
     Route: 065
  3. CYCLOSPORINE [Suspect]
     Active Substance: CYCLOSPORINE
     Indication: Immunosuppressant drug therapy
     Route: 065
  4. CYCLOPHOSPHAMIDE [Suspect]
     Active Substance: CYCLOPHOSPHAMIDE
     Indication: Immunosuppressant drug therapy
     Route: 065
  5. CYTARABINE [Suspect]
     Active Substance: CYTARABINE
     Indication: Acute undifferentiated leukaemia
     Route: 065
  6. DAUNORUBICIN [Suspect]
     Active Substance: DAUNORUBICIN
     Indication: Acute undifferentiated leukaemia
     Route: 065
  7. FLUDARABINE [Suspect]
     Active Substance: FLUDARABINE PHOSPHATE
     Indication: Acute undifferentiated leukaemia
     Route: 065
  8. IDARUBICIN [Suspect]
     Active Substance: IDARUBICIN
     Indication: Acute undifferentiated leukaemia
     Route: 065
  9. MYCOPHENOLATE MOFETIL [Suspect]
     Active Substance: MYCOPHENOLATE MOFETIL
     Indication: Immunosuppressant drug therapy
     Route: 065
  10. VANCOMYCIN [Suspect]
     Active Substance: VANCOMYCIN
     Indication: Pseudomonas infection
     Route: 065
  11. VENETOCLAX [Suspect]
     Active Substance: VENETOCLAX
     Route: 065
  12. VENETOCLAX [Suspect]
     Active Substance: VENETOCLAX
     Indication: Acute undifferentiated leukaemia
     Route: 065
  13. Cilastatin;Imipenem;Relebactam [Concomitant]
     Indication: Pseudomonas infection
     Route: 065
  14. COLISTIMETHATE SODIUM [Concomitant]
     Active Substance: COLISTIMETHATE SODIUM
     Indication: Pseudomonas infection
     Route: 065
  15. FILGRASTIM [Concomitant]
     Active Substance: FILGRASTIM
     Indication: Febrile neutropenia
     Route: 065

REACTIONS (5)
  - Pseudomonas infection [Recovering/Resolving]
  - Renal failure [Recovering/Resolving]
  - Nephropathy toxic [Recovering/Resolving]
  - Sepsis [Recovering/Resolving]
  - Drug ineffective [Unknown]
